FAERS Safety Report 21178855 (Version 2)
Quarter: 2022Q3

REPORT INFORMATION
  Report Type: Spontaneous
  Country: US (occurrence: US)
  Receive Date: 20220805
  Receipt Date: 20220919
  Transmission Date: 20221027
  Serious: Yes (Hospitalization, Other)
  Sender: FDA-Public Use
  Company Number: US-JAZZ-2022-US-020186

PATIENT
  Age: 18 Year
  Sex: Female
  Weight: 52.21 kg

DRUGS (1)
  1. XYREM [Suspect]
     Active Substance: SODIUM OXYBATE
     Indication: Product used for unknown indication
     Route: 048

REACTIONS (4)
  - Depressed level of consciousness [Unknown]
  - Suicide attempt [Unknown]
  - Agitation [Unknown]
  - Agonal respiration [Unknown]
